FAERS Safety Report 17852805 (Version 1)
Quarter: 2020Q2

REPORT INFORMATION
  Report Type: Spontaneous
  Country: US (occurrence: US)
  Receive Date: 20200603
  Receipt Date: 20200603
  Transmission Date: 20200714
  Serious: Yes (Other)
  Sender: FDA-Public Use
  Company Number: US-ABBVIE-20K-163-3422987-00

PATIENT
  Age: 33 Year
  Sex: Female
  Weight: 49.58 kg

DRUGS (1)
  1. MAVYRET [Suspect]
     Active Substance: GLECAPREVIR\PIBRENTASVIR
     Indication: CHRONIC HEPATITIS C
     Dosage: 100/40 MG STRENGTH
     Route: 048
     Dates: start: 20191105, end: 20191121

REACTIONS (2)
  - Eye pruritus [Unknown]
  - Ocular icterus [Unknown]

NARRATIVE: CASE EVENT DATE: 20191119
